FAERS Safety Report 15115692 (Version 1)
Quarter: 2018Q2

REPORT INFORMATION
  Report Type: Spontaneous
  Country: US (occurrence: US)
  Receive Date: 20180612
  Receipt Date: 20180612
  Transmission Date: 20180711
  Serious: No
  Sender: FDA-Public Use
  Company Number: None

PATIENT
  Age: 39 Year
  Sex: Female

DRUGS (1)
  1. AMPYRA [Suspect]
     Active Substance: DALFAMPRIDINE
     Indication: MULTIPLE SCLEROSIS
     Route: 048
     Dates: start: 20131003

REACTIONS (3)
  - Red blood cells urine positive [None]
  - Bacterial test positive [None]
  - Urine leukocyte esterase positive [None]

NARRATIVE: CASE EVENT DATE: 20180611
